FAERS Safety Report 7386468-X (Version None)
Quarter: 2011Q1

REPORT INFORMATION
  Report Type: 
  Country: None (occurrence: None)
  Receive Date: 20110331
  Receipt Date: 20110325
  Transmission Date: 20110831
  Serious: Yes (Hospitalization)
  Sender: FDA-Public Use
  Company Number: US-BRISTOL-MYERS SQUIBB COMPANY-15639461

PATIENT
  Age: 70 Year
  Sex: Male
  Weight: 68 kg

DRUGS (6)
  1. ERBITUX [Suspect]
     Indication: TONGUE NEOPLASM MALIGNANT STAGE UNSPECIFIED
     Dates: start: 20100901
  2. FLOMAX [Concomitant]
  3. NEURONTIN [Concomitant]
  4. LANTUS [Concomitant]
  5. NOVOLOG [Concomitant]
  6. TYLENOL W/ CODEINE [Concomitant]

REACTIONS (5)
  - DEHYDRATION [None]
  - CONFUSIONAL STATE [None]
  - FATIGUE [None]
  - DISORIENTATION [None]
  - RASH [None]
